FAERS Safety Report 5857310-0 (Version None)
Quarter: 2008Q3

REPORT INFORMATION
  Report Type: 
  Country: None (occurrence: None)
  Receive Date: 20080822
  Receipt Date: 20080806
  Transmission Date: 20090109
  Serious: Yes (Other)
  Sender: FDA-Public Use
  Company Number: B035723

PATIENT
  Age: 72 Year
  Sex: Female
  Weight: 77.27 kg

DRUGS (8)
  1. KEPPRA [Suspect]
     Indication: GRAND MAL CONVULSION
     Dosage: 500 MG/D PO
     Route: 048
  2. KEPPRA [Suspect]
     Indication: GRAND MAL CONVULSION
     Dosage: 1500 MG PO
     Route: 048
  3. KEPPRA [Suspect]
     Indication: GRAND MAL CONVULSION
     Dosage: 3000 MG PO
     Route: 048
  4. DEPAKOTE [Suspect]
     Indication: GRAND MAL CONVULSION
     Dosage: 1000 MG/D PO
     Route: 048
  5. DEPAKOTE [Concomitant]
  6. PROTONIX [Concomitant]
  7. LEXAPRO [Concomitant]
  8. AMLODIPINE [Concomitant]

REACTIONS (4)
  - CATATONIA [None]
  - DEMENTIA [None]
  - HYPOPHAGIA [None]
  - MENTAL STATUS CHANGES [None]
